FAERS Safety Report 23593254 (Version 3)
Quarter: 2024Q1

REPORT INFORMATION
  Report Type: Spontaneous
  Country: DE (occurrence: DE)
  Receive Date: 20240304
  Receipt Date: 20240318
  Transmission Date: 20240409
  Serious: No
  Sender: FDA-Public Use
  Company Number: DE-002147023-NVSC2024DE044829

PATIENT
  Sex: Female
  Weight: 56 kg

DRUGS (1)
  1. KESIMPTA [Suspect]
     Active Substance: OFATUMUMAB
     Indication: Multiple sclerosis
     Dosage: UNK, Q4W (1X MONTHLY / EVERY 4 WEEKS)
     Route: 065
     Dates: start: 2023

REACTIONS (5)
  - Pain in extremity [Unknown]
  - Product leakage [Unknown]
  - Incorrect dose administered [Unknown]
  - Product use complaint [Unknown]
  - Device use error [Unknown]

NARRATIVE: CASE EVENT DATE: 20240226
